FAERS Safety Report 6125360-5 (Version None)
Quarter: 2009Q1

REPORT INFORMATION
  Report Type: 
  Country: None (occurrence: None)
  Receive Date: 20090316
  Receipt Date: 20090306
  Transmission Date: 20090719
  Serious: Yes (Other)
  Sender: FDA-Public Use
  Company Number: 310001M09ITA

PATIENT
  Sex: Male

DRUGS (1)
  1. GONAL-F [Suspect]

REACTIONS (1)
  - LOSS OF CONSCIOUSNESS [None]
